FAERS Safety Report 24782742 (Version 1)
Quarter: 2024Q4

REPORT INFORMATION
  Report Type: Spontaneous
  Country: JP (occurrence: JP)
  Receive Date: 20241227
  Receipt Date: 20241227
  Transmission Date: 20250115
  Serious: Yes (Other)
  Sender: PFIZER
  Company Number: JP-PFIZER INC-PV202400166910

PATIENT
  Age: 50 Year
  Sex: Male

DRUGS (3)
  1. PAXLOVID [Interacting]
     Active Substance: NIRMATRELVIR\RITONAVIR
     Indication: COVID-19
     Dosage: 3 DF, 2X/DAY
     Route: 048
  2. PROGRAF [Interacting]
     Active Substance: TACROLIMUS
     Indication: Renal transplant
     Dosage: 1.5 MG, 2X/DAY (1 MG IN THE MORNING, 0.5 MG IN THE EVENING)
     Route: 048
  3. CELLCEPT [Concomitant]
     Active Substance: MYCOPHENOLATE MOFETIL
     Dosage: UNK
     Route: 048

REACTIONS (4)
  - Drug interaction [Recovering/Resolving]
  - Drug level increased [Recovering/Resolving]
  - Urinary retention [Unknown]
  - Beta-N-acetyl-D-glucosaminidase increased [Unknown]

NARRATIVE: CASE EVENT DATE: 20241214
